FAERS Safety Report 9196464 (Version 1)
Quarter: 2013Q1

REPORT INFORMATION
  Report Type: Spontaneous
  Country: US (occurrence: US)
  Receive Date: 20130328
  Receipt Date: 20130328
  Transmission Date: 20140127
  Serious: No
  Sender: FDA-Public Use
  Company Number: US-PFIZER INC-2013096422

PATIENT
  Age: 54 Year
  Sex: Female
  Weight: 79 kg

DRUGS (9)
  1. LYRICA [Suspect]
     Indication: NEURALGIA
     Dosage: UNK
  2. LYRICA [Suspect]
     Dosage: 150 MG, ALTERNATE DAY
  3. AMLODIPINE [Concomitant]
     Indication: HYPERTENSION
     Dosage: 10 MG, 1X/DAY
  4. MINOXIDIL [Concomitant]
     Indication: HYPERTENSION
     Dosage: 10 MG, 2X/DAY
  5. ZEMPLAR [Concomitant]
     Indication: RENAL FAILURE
     Dosage: UNK, 1X/DAY
  6. ASPIRIN [Concomitant]
     Dosage: 325 MG, 1X/DAY
  7. LANTUS [Concomitant]
     Indication: DIABETES MELLITUS
     Dosage: 12 IU, 2X/DAY
  8. NOVOLOG [Concomitant]
     Indication: BLOOD GLUCOSE ABNORMAL
     Dosage: UNK, 3X/DAY
  9. LASIX [Concomitant]
     Dosage: 80 MG, UNK

REACTIONS (3)
  - Intentional drug misuse [Unknown]
  - Headache [Not Recovered/Not Resolved]
  - Irritability [Not Recovered/Not Resolved]
